FAERS Safety Report 7826051-2 (Version None)
Quarter: 2011Q4

REPORT INFORMATION
  Report Type: 
  Country: None (occurrence: None)
  Receive Date: 20111019
  Receipt Date: 20111010
  Transmission Date: 20120403
  Serious: Yes (Hospitalization)
  Sender: FDA-Public Use
  Company Number: DE-ASTRAZENECA-2011SE58111

PATIENT
  Age: 27479 Day
  Sex: Male
  Weight: 74 kg

DRUGS (11)
  1. BRILIQUE [Suspect]
     Indication: THROMBOSIS PROPHYLAXIS
     Route: 048
     Dates: start: 20110701
  2. EZETIMIBE [Concomitant]
     Indication: CORONARY ARTERY DISEASE
     Route: 048
     Dates: start: 20100101
  3. RAMIPRIL [Concomitant]
     Route: 048
     Dates: start: 20070101
  4. BISOPROLOL [Concomitant]
     Indication: HYPERTENSION
     Route: 048
     Dates: start: 20050101
  5. ASPIRIN [Concomitant]
     Indication: CORONARY ARTERY DISEASE
     Route: 048
     Dates: start: 19980101
  6. ACTRAPID [Concomitant]
     Indication: DIABETES MELLITUS
     Route: 058
     Dates: start: 19980101
  7. BISOPROLOL [Concomitant]
     Indication: CORONARY ARTERY DISEASE
     Route: 048
     Dates: start: 20050101
  8. AMLODIPINE [Concomitant]
     Indication: CORONARY ARTERY DISEASE
     Route: 048
     Dates: start: 20070101
  9. PROTAPHANE [Concomitant]
     Indication: DIABETES MELLITUS
     Route: 058
     Dates: start: 19980101
  10. AMLODIPINE [Concomitant]
     Indication: HYPERTENSION
     Route: 048
     Dates: start: 20070101
  11. BRILIQUE [Suspect]
     Indication: STENT PLACEMENT
     Route: 048
     Dates: start: 20110701

REACTIONS (5)
  - PROTHROMBIN TIME PROLONGED [None]
  - ACTIVATED PARTIAL THROMBOPLASTIN TIME PROLONGED [None]
  - ANAEMIA [None]
  - COAGULATION TEST ABNORMAL [None]
  - HAEMATOMA [None]
